FAERS Safety Report 16661577 (Version 1)
Quarter: 2019Q3

REPORT INFORMATION
  Report Type: Spontaneous
  Country: US (occurrence: US)
  Receive Date: 20190802
  Receipt Date: 20190802
  Transmission Date: 20191004
  Serious: No
  Sender: FDA-Public Use
  Company Number: US-TEVA-2019-US-1085331

PATIENT

DRUGS (4)
  1. ALPRAZOLAM. [Suspect]
     Active Substance: ALPRAZOLAM
     Indication: INSOMNIA
     Route: 065
  2. AMBIEN [Suspect]
     Active Substance: ZOLPIDEM TARTRATE
     Route: 065
  3. DIAZEPAM. [Suspect]
     Active Substance: DIAZEPAM
     Route: 048
  4. LUNESTA [Suspect]
     Active Substance: ESZOPICLONE
     Route: 065

REACTIONS (1)
  - Drug ineffective [Unknown]
